FAERS Safety Report 12940085 (Version 1)
Quarter: 2016Q4

REPORT INFORMATION
  Report Type: Spontaneous
  Country: US (occurrence: US)
  Receive Date: 20161115
  Receipt Date: 20161115
  Transmission Date: 20170207
  Serious: Yes (Disabling)
  Sender: FDA-Public Use
  Company Number: None

PATIENT
  Age: 56 Year
  Sex: Female
  Weight: 74.25 kg

DRUGS (21)
  1. VITAMIN C [Concomitant]
     Active Substance: ASCORBIC ACID
  2. EPSOM SALT SOAKS [Concomitant]
  3. L-ARGININE [Concomitant]
     Active Substance: ARGININE
  4. BENADRYL [Concomitant]
     Active Substance: DIPHENHYDRAMINE HYDROCHLORIDE
  5. VITAMIN B COMPLEX [Concomitant]
     Active Substance: CYANOCOBALAMIN\DEXPANTHENOL\NIACINAMIDE\PYRIDOXINE HYDROCHLORIDE\RIBOFLAVIN 5^-PHOSPHATE SODIUM\THIAMINE HYDROCHLORIDE\VITAMIN B COMPLEX
  6. MELATONIN [Concomitant]
     Active Substance: MELATONIN
  7. ALPHA LIPOIC ACID [Concomitant]
     Active Substance: .ALPHA.-LIPOIC ACID
  8. IODINE. [Concomitant]
     Active Substance: IODINE
  9. CALCIUM [Concomitant]
     Active Substance: CALCIUM
  10. VITAMIN D3 [Concomitant]
     Active Substance: CHOLECALCIFEROL
  11. TURMERIC [Concomitant]
     Active Substance: TURMERIC
  12. MAGNESIUM [Concomitant]
     Active Substance: MAGNESIUM
  13. LEVOFLOXACIN. [Suspect]
     Active Substance: LEVOFLOXACIN
     Indication: BRONCHITIS
     Dosage: ?          QUANTITY:21 TABLET(S);?
     Route: 048
     Dates: start: 20160714, end: 20160720
  14. VALERIAN ROOT [Concomitant]
     Active Substance: VALERIAN
  15. GRAPESEED EXTRACT [Concomitant]
  16. COQ10 [Concomitant]
     Active Substance: UBIDECARENONE
  17. TOPICAL PAIN CREAMS ABD ESSENTIAL OILS [Concomitant]
  18. RESVERATROL [Concomitant]
     Active Substance: RESVERATROL
  19. OMEGA COMPLETE [Concomitant]
  20. MULTI VITAMIN [Concomitant]
     Active Substance: VITAMINS
  21. PROBIOTICS [Concomitant]
     Active Substance: PROBIOTICS NOS

REACTIONS (14)
  - Hyperacusis [None]
  - Gastric disorder [None]
  - Dizziness [None]
  - Condition aggravated [None]
  - Impaired work ability [None]
  - Chronic fatigue syndrome [None]
  - Rash [None]
  - Disorientation [None]
  - Photophobia [None]
  - Drug intolerance [None]
  - Dyspepsia [None]
  - Dysstasia [None]
  - Muscular weakness [None]
  - Vision blurred [None]

NARRATIVE: CASE EVENT DATE: 20160721
